APPROVED DRUG PRODUCT: AMPHETAMINE SULFATE
Active Ingredient: AMPHETAMINE SULFATE
Strength: 10MG
Dosage Form/Route: TABLET;ORAL
Application: A211139 | Product #002 | TE Code: AA
Applicant: AMNEAL PHARMACEUTICALS OF NEW YORK LLC
Approved: Sep 26, 2018 | RLD: No | RS: No | Type: RX